FAERS Safety Report 5519248-8 (Version None)
Quarter: 2007Q4

REPORT INFORMATION
  Report Type: 
  Country: None (occurrence: None)
  Receive Date: 20071116
  Receipt Date: 20071106
  Transmission Date: 20080405
  Serious: Yes (Hospitalization)
  Sender: FDA-Public Use
  Company Number: US-AMGEN-STX251410

PATIENT
  Sex: Female

DRUGS (1)
  1. ENBREL [Suspect]
     Indication: RHEUMATOID ARTHRITIS
     Route: 058
     Dates: start: 20070602

REACTIONS (3)
  - CHOLECYSTITIS [None]
  - CHOLELITHIASIS [None]
  - SINUSITIS [None]
